FAERS Safety Report 15998532 (Version 1)
Quarter: 2019Q1

REPORT INFORMATION
  Report Type: Report from Study
  Country: IT (occurrence: IT)
  Receive Date: 20190223
  Receipt Date: 20190223
  Transmission Date: 20190418
  Serious: Yes (Other)
  Sender: FDA-Public Use
  Company Number: IT-ACCORD-108785

PATIENT
  Age: 71 Year
  Sex: Male

DRUGS (8)
  1. VALSARTAN. [Concomitant]
     Active Substance: VALSARTAN
  2. FLUOROURACIL. [Suspect]
     Active Substance: FLUOROURACIL
     Indication: GASTRIC CANCER STAGE IV
     Route: 042
     Dates: start: 20180326
  3. LIMICAN [Concomitant]
     Active Substance: ALIZAPRIDE HYDROCHLORIDE
     Dosage: STRENGTH: 50 MG
  4. HERCEPTIN [Suspect]
     Active Substance: TRASTUZUMAB
     Indication: GASTRIC CANCER STAGE IV
     Dosage: STRENGTH: 150 MG,
     Route: 042
     Dates: start: 20180327
  5. FOLINA [Concomitant]
     Active Substance: FOLIC ACID
     Dosage: STRENGTH: 5 MG
  6. CALCIUM LEVOFOLINATE [Concomitant]
     Active Substance: LEVOLEUCOVORIN CALCIUM
  7. SOLDESAM [Concomitant]
     Active Substance: DEXAMETHASONE
  8. PANTOPRAZOLE [Concomitant]
     Active Substance: PANTOPRAZOLE

REACTIONS (3)
  - Neutropenia [Recovering/Resolving]
  - Thrombocytopenia [Recovering/Resolving]
  - Leukopenia [Recovering/Resolving]

NARRATIVE: CASE EVENT DATE: 20180712
